FAERS Safety Report 10442677 (Version 1)
Quarter: 2014Q3

REPORT INFORMATION
  Report Type: Spontaneous
  Country: AU (occurrence: None)
  Receive Date: 20140908
  Receipt Date: 20140908
  Transmission Date: 20150326
  Serious: Yes (Other)
  Sender: FDA-Public Use
  Company Number: 2014-20273

PATIENT
  Age: 83 Year
  Sex: Female

DRUGS (1)
  1. EYLEA [Suspect]
     Active Substance: AFLIBERCEPT
     Indication: AGE-RELATED MACULAR DEGENERATION
     Dosage: 2 MG MILLIGRAM(S), EVERY 6 WEEKS, INTRAOCULAR
     Route: 031
     Dates: start: 20140606

REACTIONS (2)
  - Inappropriate schedule of drug administration [None]
  - Eye haemorrhage [None]

NARRATIVE: CASE EVENT DATE: 2014
